FAERS Safety Report 15292511 (Version 2)
Quarter: 2018Q3

REPORT INFORMATION
  Report Type: Spontaneous
  Country: US (occurrence: US)
  Receive Date: 20180818
  Receipt Date: 20180821
  Transmission Date: 20181010
  Serious: Yes (Other)
  Sender: FDA-Public Use
  Company Number: US-LANNETT COMPANY, INC.-US-2018LAN000948

PATIENT
  Age: 9 Year
  Sex: Female

DRUGS (2)
  1. BACLOFEN (20MG) [Suspect]
     Active Substance: BACLOFEN
     Indication: MYALGIA
     Dosage: UNK
     Route: 037
  2. BACLOFEN (20MG) [Suspect]
     Active Substance: BACLOFEN
     Indication: MUSCLE SPASTICITY
     Dosage: UNK
     Route: 037

REACTIONS (3)
  - Hypoxia [Recovered/Resolved]
  - Somnolence [Recovered/Resolved]
  - Respiration abnormal [Recovered/Resolved]
